FAERS Safety Report 5267282-8 (Version None)
Quarter: 2007Q1

REPORT INFORMATION
  Report Type: 
  Country: None (occurrence: None)
  Receive Date: 20070316
  Receipt Date: 20070314
  Transmission Date: 20070707
  Serious: Yes (Other)
  Sender: FDA-Public Use
  Company Number: US-GLAXOSMITHKLINE-A0643415A

PATIENT
  Sex: Male

DRUGS (1)
  1. COREG [Suspect]
     Indication: DRUG USE FOR UNKNOWN INDICATION
     Dosage: 12.5MG TWICE PER DAY
     Route: 048

REACTIONS (8)
  - ABNORMAL BEHAVIOUR [None]
  - APATHY [None]
  - DEMENTIA [None]
  - DYSPNOEA [None]
  - FATIGUE [None]
  - OBSESSIVE-COMPULSIVE DISORDER [None]
  - SOMNOLENCE [None]
  - WEIGHT INCREASED [None]
